FAERS Safety Report 7122051-9 (Version None)
Quarter: 2010Q4

REPORT INFORMATION
  Report Type: 
  Country: None (occurrence: None)
  Receive Date: 20101124
  Receipt Date: 20101116
  Transmission Date: 20110411
  Serious: Yes (Hospitalization)
  Sender: FDA-Public Use
  Company Number: B0684653A

PATIENT
  Sex: Male

DRUGS (11)
  1. DERMOVAL [Suspect]
     Indication: PEMPHIGOID
     Dosage: 4UNIT PER DAY
     Route: 061
     Dates: start: 20100824
  2. TAHOR [Concomitant]
     Dosage: 40MG AT NIGHT
     Route: 065
  3. PLAVIX [Concomitant]
     Dosage: 75MG PER DAY
     Route: 065
  4. FUROSEMIDE [Concomitant]
     Dosage: 20MG IN THE MORNING
     Route: 065
  5. CANDESARTAN CILEXETIL/HYDROCHLOROTHIAZIDE (ATACAND HCT) [Concomitant]
     Dosage: 1UNIT IN THE MORNING
     Route: 065
  6. BISOPROLOL FUMARATE [Concomitant]
     Dosage: 10MG IN THE MORNING
     Route: 065
  7. JANUVIA [Concomitant]
     Dosage: 100MG AT NIGHT
     Route: 065
  8. NOVONORM [Concomitant]
     Dosage: 3MG THREE TIMES PER DAY
     Route: 065
  9. STAGID [Concomitant]
     Dosage: 700MG TWICE PER DAY
     Route: 065
  10. BROMAZEPAM [Concomitant]
     Dosage: 3MG AT NIGHT
     Route: 065
  11. STARCH [Concomitant]
     Indication: PEMPHIGOID
     Dates: start: 20100824

REACTIONS (3)
  - ABSCESS [None]
  - DIABETES MELLITUS INADEQUATE CONTROL [None]
  - STAPHYLOCOCCAL ABSCESS [None]
